FAERS Safety Report 9801609 (Version 1)
Quarter: 2014Q1

REPORT INFORMATION
  Report Type: Spontaneous
  Country: FR (occurrence: FR)
  Receive Date: 20140107
  Receipt Date: 20140107
  Transmission Date: 20141002
  Serious: Yes (Death, Hospitalization, Other)
  Sender: FDA-Public Use
  Company Number: FR-009507513-1401FRA001282

PATIENT
  Age: 82 Year
  Sex: Male

DRUGS (16)
  1. EPTIFIBATIDE [Suspect]
     Indication: PRODUCT USED FOR UNKNOWN INDICATION
     Dosage: 13 ML, QD
     Route: 042
     Dates: start: 20131028, end: 20131030
  2. HEPARIN CALCIUM [Suspect]
     Dosage: 1 ML, QD
     Route: 058
     Dates: start: 20131023, end: 20131030
  3. ASPIRIN LYSINE [Suspect]
     Dosage: 75 MG, QD
     Route: 048
     Dates: start: 20131025, end: 20131030
  4. TICAGRELOR [Suspect]
     Dosage: 180 MG, QD
     Route: 048
     Dates: start: 20131028, end: 20131030
  5. CLOPIDOGREL [Suspect]
     Dosage: UNK
     Route: 048
     Dates: start: 20131024, end: 20131028
  6. ASPEGIC [Suspect]
     Dosage: 250 MG, QD
     Route: 042
     Dates: start: 20131028, end: 20131028
  7. WARFARIN SODIUM [Concomitant]
     Dosage: UNK
     Dates: end: 20131022
  8. AMIODARONE HYDROCHLORIDE [Concomitant]
  9. BUMETANIDE [Concomitant]
  10. PANTOPRAZOLE [Concomitant]
     Dosage: UNK
  11. PREDNISOLONE [Concomitant]
  12. SPIRONOLACTONE [Concomitant]
     Dosage: UNK
     Dates: end: 20131023
  13. PERINDOPRIL ERBUMINE [Concomitant]
     Dosage: UNK
     Dates: end: 20131023
  14. ENOXAPARIN SODIUM [Concomitant]
     Dosage: UNK
     Dates: start: 20131022
  15. HEPARIN [Concomitant]
     Dosage: UNK
     Dates: start: 20131024, end: 20131028
  16. ISOSORBIDE DINITRATE [Concomitant]
     Dosage: UNK
     Dates: start: 20131024

REACTIONS (6)
  - Cerebral haematoma [Fatal]
  - Hemianopia [Not Recovered/Not Resolved]
  - VIIth nerve paralysis [Not Recovered/Not Resolved]
  - Delirium [Not Recovered/Not Resolved]
  - Hemiplegia [Not Recovered/Not Resolved]
  - Disturbance in attention [Not Recovered/Not Resolved]
